FAERS Safety Report 17793618 (Version 3)
Quarter: 2020Q4

REPORT INFORMATION
  Report Type: Spontaneous
  Country: US (occurrence: US)
  Receive Date: 20200515
  Receipt Date: 20201112
  Transmission Date: 20210113
  Serious: Yes (Death, Other)
  Sender: FDA-Public Use
  Company Number: US-PURDUE-USA-2020-0153091

PATIENT
  Age: 41 Year
  Sex: Male

DRUGS (2)
  1. OXYCONTIN [Suspect]
     Active Substance: OXYCODONE HYDROCHLORIDE
     Indication: PRODUCT USED FOR UNKNOWN INDICATION
     Route: 048
  2. OXYCODONE HYDROCHLORIDE (SIMILAR TO NDA 22-272) [Suspect]
     Active Substance: OXYCODONE HYDROCHLORIDE
     Indication: PRODUCT USED FOR UNKNOWN INDICATION
     Dosage: UNK
     Route: 048

REACTIONS (8)
  - Suicidal ideation [Unknown]
  - Death [Fatal]
  - Diabetes mellitus [Fatal]
  - Personality change [Unknown]
  - Drug dependence [Unknown]
  - Gastrointestinal haemorrhage [Fatal]
  - Renal failure [Fatal]
  - Aggression [Unknown]

NARRATIVE: CASE EVENT DATE: 20001207
